FAERS Safety Report 19731180 (Version 2)
Quarter: 2024Q3

REPORT INFORMATION
  Report Type: Spontaneous
  Country: ES (occurrence: ES)
  Receive Date: 20210821
  Receipt Date: 20240809
  Transmission Date: 20241017
  Serious: Yes (Other)
  Sender: AMGEN
  Company Number: ES-002147023-NVSC2021ES181556

PATIENT
  Age: 50 Year
  Sex: Male
  Weight: 76 kg

DRUGS (2)
  1. AIMOVIG [Suspect]
     Active Substance: ERENUMAB-AOOE
     Indication: Migraine
     Dosage: UNK, QMO
     Route: 030
     Dates: start: 2021
  2. FOSTER [Concomitant]
     Active Substance: BECLOMETHASONE\FORMOTEROL
     Indication: Asthma
     Dosage: 1 DF, QD (DAILY) (PER PULSATION  SOLUTION FOR INHALATION IN PRESSURE CONTAINER, 1 INHALER OF 120 PUF
     Route: 055

REACTIONS (2)
  - Chest pain [Recovering/Resolving]
  - Skin hypopigmentation [Not Recovered/Not Resolved]

NARRATIVE: CASE EVENT DATE: 20210101
